FAERS Safety Report 21382341 (Version 1)
Quarter: 2022Q3

REPORT INFORMATION
  Report Type: Spontaneous
  Country: CO (occurrence: CO)
  Receive Date: 20220927
  Receipt Date: 20220927
  Transmission Date: 20221027
  Serious: Yes (Other)
  Sender: FDA-Public Use
  Company Number: CO-002147023-NVSC2022CO216203

PATIENT
  Age: 84 Year
  Sex: Male

DRUGS (1)
  1. LUCENTIS [Suspect]
     Active Substance: RANIBIZUMAB
     Indication: Macular degeneration
     Dosage: 10 MG, QMO
     Route: 047

REACTIONS (3)
  - Retinal vascular disorder [Recovered/Resolved]
  - Blindness [Recovering/Resolving]
  - Retinal haemorrhage [Unknown]
